FAERS Safety Report 5025900-3 (Version None)
Quarter: 2006Q2

REPORT INFORMATION
  Report Type: 
  Country: None (occurrence: None)
  Receive Date: 20060612
  Receipt Date: 20060612
  Transmission Date: 20061013
  Serious: Yes (Hospitalization)
  Sender: FDA-Public Use
  Company Number: None

PATIENT
  Age: 47 Year
  Sex: Female

DRUGS (5)
  1. AVONEX [Suspect]
     Dosage: 30 MICROGRAMS WEEKLY IV
     Route: 042
     Dates: start: 20040611, end: 20040924
  2. ZIAC [Concomitant]
  3. AMBIEN [Concomitant]
  4. TYLENOL (CAPLET) [Concomitant]
  5. SOLU-MEDROL [Concomitant]

REACTIONS (9)
  - ALANINE AMINOTRANSFERASE INCREASED [None]
  - ASPARTATE AMINOTRANSFERASE INCREASED [None]
  - BLOOD BILIRUBIN INCREASED [None]
  - CHRONIC HEPATITIS [None]
  - COUGH [None]
  - HEPATIC ENZYME INCREASED [None]
  - HEPATIC FIBROSIS [None]
  - INFLAMMATION [None]
  - RHINORRHOEA [None]
